FAERS Safety Report 4562363-6 (Version None)
Quarter: 2005Q1

REPORT INFORMATION
  Report Type: 
  Country: None (occurrence: None)
  Receive Date: 20050121
  Receipt Date: 20050110
  Transmission Date: 20050727
  Serious: Yes (Life-Threatening, Hospitalization)
  Sender: FDA-Public Use
  Company Number: 2005-DE-00101DE

PATIENT
  Sex: Male

DRUGS (3)
  1. VIRAMUNE [Suspect]
     Dosage: 200 MG, PO
     Route: 048
  2. MITOMYCIN [Suspect]
     Dosage: PO
     Route: 048
  3. VIREAD [Suspect]
     Dosage: PO
     Route: 048

REACTIONS (6)
  - ALCOHOL USE [None]
  - COMA [None]
  - DRUG INEFFECTIVE [None]
  - FALL [None]
  - MIOSIS [None]
  - RESPIRATORY FAILURE [None]
